FAERS Safety Report 17681774 (Version 4)
Quarter: 2020Q4

REPORT INFORMATION
  Report Type: Report from Study
  Country: US (occurrence: US)
  Receive Date: 20200417
  Receipt Date: 20201127
  Transmission Date: 20210113
  Serious: Yes (Death, Hospitalization)
  Sender: FDA-Public Use
  Company Number: US-GILEAD-2019-0390074

PATIENT
  Age: 60 Year
  Sex: Male
  Weight: 96 kg

DRUGS (46)
  1. TYLENOL [Concomitant]
     Active Substance: ACETAMINOPHEN
     Dosage: 1000,MG,OTHER
     Route: 048
     Dates: start: 20190901
  2. POTASSIUM CHLORIDE. [Concomitant]
     Active Substance: POTASSIUM CHLORIDE
     Dosage: 20,OTHER,ONCE
     Route: 042
     Dates: start: 20190211, end: 20190211
  3. ALTEPLASE. [Concomitant]
     Active Substance: ALTEPLASE
     Dosage: 2,MG,ONCE
     Route: 042
     Dates: start: 20190217, end: 20190217
  4. LOPERAMIDE [Concomitant]
     Active Substance: LOPERAMIDE
     Dosage: 2,MG,OTHER
     Route: 048
     Dates: start: 20190215, end: 20190220
  5. ALBUTEROL [SALBUTAMOL] [Concomitant]
     Active Substance: ALBUTEROL
     Dosage: 2.5,MG,OTHER
     Route: 055
     Dates: start: 20190215, end: 20190218
  6. DEXAMETHASONE. [Concomitant]
     Active Substance: DEXAMETHASONE
     Dosage: UNK
     Dates: end: 20190205
  7. GUAIFENESIN. [Concomitant]
     Active Substance: GUAIFENESIN
     Dosage: 100,MG,OTHER
     Route: 048
     Dates: start: 20190213, end: 20190215
  8. DIPHENHYDRAMINE. [Concomitant]
     Active Substance: DIPHENHYDRAMINE
     Dosage: 12.5,MG,ONCE
     Route: 058
     Dates: start: 20190211, end: 20190211
  9. ALLOPURINOL. [Concomitant]
     Active Substance: ALLOPURINOL
     Dosage: 300,MG,DAILY
     Route: 048
     Dates: start: 20190211, end: 20190215
  10. CIPROFLOXACIN. [Concomitant]
     Active Substance: CIPROFLOXACIN
     Dosage: 500,MG,TWICE DAILY
     Route: 048
     Dates: start: 20190211, end: 20190213
  11. ALTEPLASE. [Concomitant]
     Active Substance: ALTEPLASE
     Dosage: 2,MG,ONCE
     Route: 042
     Dates: start: 20190213, end: 20190213
  12. BENZONATATE. [Concomitant]
     Active Substance: BENZONATATE
     Dosage: 200,MG,THREE TIMES DAILY
     Route: 048
     Dates: start: 20190215, end: 20190220
  13. ONDANSETRON [Concomitant]
     Active Substance: ONDANSETRON
     Dosage: 8,MG,ONCE
     Route: 042
     Dates: start: 20190215, end: 20190215
  14. HEPARIN [Concomitant]
     Active Substance: HEPARIN SODIUM
     Dosage: 0-3000,OTHER,CONTINUOUS
     Route: 042
     Dates: start: 20190218, end: 20190219
  15. ACYCLOVIR [ACICLOVIR] [Concomitant]
     Active Substance: ACYCLOVIR
     Dosage: 400,MG,TWICE DAILY
     Route: 048
     Dates: start: 20140101
  16. PIPERACILLIN AND TAZOBACTAM [Concomitant]
     Active Substance: PIPERACILLIN SODIUM\TAZOBACTAM SODIUM
     Dosage: 50,ML,FOUR TIMES DAILY
     Route: 042
     Dates: start: 20190214, end: 20190219
  17. VANCOMYCIN [Concomitant]
     Active Substance: VANCOMYCIN
     Dosage: 1,G,ONCE
     Route: 042
     Dates: start: 20190213, end: 20190213
  18. IPRATROPIUM [Concomitant]
     Active Substance: IPRATROPIUM
     Dosage: 0.5,MG,ONCE
     Route: 045
     Dates: start: 20190214, end: 20190214
  19. DIPHENOXYLATE/ATROPINE [Concomitant]
     Active Substance: ATROPINE\DIPHENOXYLATE
     Dosage: 2.5-0.025,MG,THREE TIMES DAILY
     Route: 048
     Dates: start: 20190217, end: 20190220
  20. LORAZEPAM. [Concomitant]
     Active Substance: LORAZEPAM
     Dosage: 0.5,MG,ONCE
     Route: 042
     Dates: start: 20190217, end: 20190217
  21. RIVAROXABAN [Concomitant]
     Active Substance: RIVAROXABAN
     Dosage: 15,MG,TWICE DAILY
     Route: 048
     Dates: start: 20190222, end: 20190318
  22. ACYCLOVIR [ACICLOVIR] [Concomitant]
     Active Substance: ACYCLOVIR
     Dosage: 400,MG,TWICE DAILY
     Route: 048
     Dates: start: 20190211, end: 20190219
  23. TYLENOL [Concomitant]
     Active Substance: ACETAMINOPHEN
     Dosage: UNK; 650 MG
     Dates: start: 20190215, end: 20190215
  24. SODIUM BICARBONATE;SODIUM CHLORIDE [Concomitant]
     Dosage: 5-10,ML,FOUR TIMES DAILY
     Route: 048
     Dates: start: 20190213, end: 20190220
  25. BENZOCAINE-MENTHOL [Concomitant]
     Dosage: 1,OTHER,OTHER
     Route: 050
     Dates: start: 20190214, end: 20190216
  26. SILDENAFIL. [Concomitant]
     Active Substance: SILDENAFIL
     Dosage: 0.5,MG,AS NECESSARY
     Route: 048
     Dates: start: 20120101
  27. PANTOPRAZOLE [Concomitant]
     Active Substance: PANTOPRAZOLE
     Dosage: 40,MG,DAILY
     Route: 042
     Dates: start: 20190217, end: 20190219
  28. LEVETIRACETAM. [Concomitant]
     Active Substance: LEVETIRACETAM
     Dosage: 750,MG,TWICE DAILY
     Route: 048
     Dates: start: 20190211, end: 20190220
  29. POTASSIUM CHLORIDE. [Concomitant]
     Active Substance: POTASSIUM CHLORIDE
     Dosage: 40,OTHER,ONCE
     Dates: start: 20190218, end: 20190218
  30. FLUDARABINE [Suspect]
     Active Substance: FLUDARABINE PHOSPHATE
     Indication: BONE MARROW CONDITIONING REGIMEN
     Dosage: 66.3 MG, QD; ^30^
     Route: 042
     Dates: start: 20190206, end: 20190208
  31. ENTECAVIR DSEP [Concomitant]
     Indication: VIRAEMIA
     Dosage: 0.5,MG,DAILY
     Route: 048
     Dates: start: 20180201
  32. TYLENOL [Concomitant]
     Active Substance: ACETAMINOPHEN
     Dosage: UNK; 650 MG
     Dates: start: 20190211, end: 20190211
  33. GUAIFENESIN. [Concomitant]
     Active Substance: GUAIFENESIN
     Dosage: 5,ML,OTHER
     Route: 048
     Dates: start: 20140101, end: 20190425
  34. POTASSIUM CHLORIDE. [Concomitant]
     Active Substance: POTASSIUM CHLORIDE
     Dosage: 40-60,OTHER,DAILY
     Route: 048
     Dates: start: 20190218, end: 20190219
  35. NACL [Concomitant]
     Active Substance: SODIUM CHLORIDE
     Dosage: 50,ML,CONTINUOUS
     Route: 042
     Dates: start: 20190211, end: 20190211
  36. PIPERACILLIN AND TAZOBACTAM [Concomitant]
     Active Substance: PIPERACILLIN SODIUM\TAZOBACTAM SODIUM
     Dosage: 50,ML,THREE TIMES DAILY
     Route: 042
     Dates: start: 20190213, end: 20190213
  37. FILGRASTIM [Concomitant]
     Active Substance: FILGRASTIM
     Dosage: 480,MG,DAILY
     Route: 042
     Dates: start: 20190213, end: 20190217
  38. DEXTROSE 5% [Concomitant]
     Active Substance: DEXTROSE
     Dosage: 2,OTHER,TWICE DAILY
     Route: 042
     Dates: start: 20190213, end: 20190213
  39. HYDROCODONE COMPOUND [HOMATROPINE HYDROBROMIDE;HYDROCODONE BITARTRATE] [Concomitant]
     Dosage: 5,ML,ONCE
     Route: 048
     Dates: start: 20190214, end: 20190215
  40. PANTOPRAZOLE [Concomitant]
     Active Substance: PANTOPRAZOLE
     Dosage: 40,MG,TWICE DAILY
     Dates: start: 20190218, end: 20190220
  41. AXICABTAGENE CILOLEUCEL [Suspect]
     Active Substance: AXICABTAGENE CILOLEUCEL
     Indication: B-CELL UNCLASSIFIABLE LYMPHOMA HIGH GRADE
     Dosage: 68 ML, ONCE
     Route: 042
     Dates: start: 20190211, end: 20190211
  42. CYCLOPHOSPHAMIDE. [Suspect]
     Active Substance: CYCLOPHOSPHAMIDE
     Indication: BONE MARROW CONDITIONING REGIMEN
     Dosage: 1105 MG, QD; ^500^
     Route: 042
     Dates: start: 20190206, end: 20190208
  43. MESNA. [Suspect]
     Active Substance: MESNA
     Indication: PROPHYLAXIS
     Dosage: 1 DOSAGE FORM, QD; ^500^
     Route: 042
     Dates: start: 20190206, end: 20190208
  44. TEMAZEPAM. [Concomitant]
     Active Substance: TEMAZEPAM
     Dosage: 15,MG,OTHER
     Route: 048
     Dates: start: 20190211, end: 20190220
  45. TOCILIZUMAB. [Concomitant]
     Active Substance: TOCILIZUMAB
     Dosage: 8,MG/KG,OTHER
     Route: 042
     Dates: start: 20190215, end: 20190216
  46. ENOXAPARIN [Concomitant]
     Active Substance: ENOXAPARIN
     Dosage: 100,MG,TWICE DAILY
     Route: 058
     Dates: start: 20190219, end: 20190220

REACTIONS (3)
  - Dyspnoea [Recovered/Resolved]
  - Hepatitis B reactivation [Fatal]
  - Hepatitis B reactivation [Not Recovered/Not Resolved]

NARRATIVE: CASE EVENT DATE: 20190206
